FAERS Safety Report 13327493 (Version 2)
Quarter: 2017Q2

REPORT INFORMATION
  Report Type: Spontaneous
  Country: US (occurrence: US)
  Receive Date: 20170313
  Receipt Date: 20170421
  Transmission Date: 20170830
  Serious: No
  Sender: FDA-Public Use
  Company Number: US-JNJFOC-20170102456

PATIENT
  Age: 68 Year
  Sex: Female
  Weight: 58.97 kg

DRUGS (4)
  1. ATORVASTATIN [Concomitant]
     Active Substance: ATORVASTATIN
     Indication: BLOOD CHOLESTEROL INCREASED
     Dosage: TILL JUL-2019
     Route: 065
     Dates: start: 2009
  2. SOTALOL. [Concomitant]
     Active Substance: SOTALOL
     Indication: CARDIAC DISORDER
     Dosage: TILL JUL-2019
     Route: 065
     Dates: start: 200907
  3. WOMENS ROGAINE UNSCENTED [Suspect]
     Active Substance: MINOXIDIL
     Route: 061
  4. WOMENS ROGAINE UNSCENTED [Suspect]
     Active Substance: MINOXIDIL
     Indication: ALOPECIA
     Dosage: ENOUGH TO COVER THE BOTTOM
     Route: 061
     Dates: start: 20170101

REACTIONS (6)
  - Hyperaesthesia [Recovered/Resolved]
  - Product selection error [Recovered/Resolved]
  - Pain of skin [Recovered/Resolved]
  - Erythema [Unknown]
  - Drug administration error [Recovered/Resolved]
  - Rash [Recovered/Resolved]

NARRATIVE: CASE EVENT DATE: 20170101
